FAERS Safety Report 15934287 (Version 1)
Quarter: 2019Q1

REPORT INFORMATION
  Report Type: Spontaneous
  Country: PT (occurrence: PT)
  Receive Date: 20190207
  Receipt Date: 20190207
  Transmission Date: 20190417
  Serious: Yes (Other)
  Sender: FDA-Public Use
  Company Number: PT-FRESENIUS KABI-FK201901342

PATIENT
  Age: 29 Year
  Sex: Female

DRUGS (1)
  1. PROPOFOL (MANUFACTURER UNKNOWN) [Suspect]
     Active Substance: PROPOFOL
     Indication: SEIZURE
     Route: 042

REACTIONS (3)
  - Seizure [Unknown]
  - Maternal exposure timing unspecified [Unknown]
  - Product use in unapproved indication [Unknown]
